FAERS Safety Report 5647152-3 (Version None)
Quarter: 2008Q1

REPORT INFORMATION
  Report Type: 
  Country: None (occurrence: None)
  Receive Date: 20080303
  Receipt Date: 20080228
  Transmission Date: 20080703
  Serious: Yes (Disabling, Other)
  Sender: FDA-Public Use
  Company Number: US-MERCK-0711USA00222

PATIENT
  Age: 44 Year
  Sex: Male
  Weight: 88 kg

DRUGS (7)
  1. JANUVIA [Suspect]
     Indication: TYPE 2 DIABETES MELLITUS
     Route: 048
     Dates: start: 20070821, end: 20070920
  2. CRESTOR [Concomitant]
     Indication: HYPERLIPIDAEMIA
     Route: 048
     Dates: start: 20070829
  3. ASPIRIN [Concomitant]
     Route: 065
     Dates: start: 20070822
  4. PROTONIX [Concomitant]
     Route: 065
  5. PAXIL [Concomitant]
     Indication: ANXIETY
     Route: 048
     Dates: start: 20070829
  6. PREDNISONE [Concomitant]
     Indication: PSORIASIS
     Route: 065
     Dates: start: 20070829
  7. ACIPHEX [Concomitant]
     Indication: GASTROOESOPHAGEAL REFLUX DISEASE
     Route: 048

REACTIONS (3)
  - DERMATITIS [None]
  - DRUG ERUPTION [None]
  - MENTAL DISORDER DUE TO A GENERAL MEDICAL CONDITION [None]
